FAERS Safety Report 23986316 (Version 2)
Quarter: 2024Q2

REPORT INFORMATION
  Report Type: Report from Study
  Country: GB (occurrence: GB)
  Receive Date: 20240618
  Receipt Date: 20240620
  Transmission Date: 20240716
  Serious: Yes (Other)
  Sender: FDA-Public Use
  Company Number: GB-SA-2024SA164068

PATIENT
  Age: 38 Year
  Sex: Female

DRUGS (6)
  1. LEVETIRACETAM [Interacting]
     Active Substance: LEVETIRACETAM
     Indication: Temporal lobe epilepsy
     Dosage: 2000 MG, 1X/DAY
  2. VALPROATE SODIUM [Interacting]
     Active Substance: VALPROATE SODIUM
     Indication: Temporal lobe epilepsy
     Dosage: 1500 MG, 1X/DAY
  3. ZONISAMIDE [Interacting]
     Active Substance: ZONISAMIDE
     Indication: Temporal lobe epilepsy
     Dosage: 150 MG, 1X/DAY
  4. CARBAMAZEPINE [Interacting]
     Active Substance: CARBAMAZEPINE
     Indication: Temporal lobe epilepsy
     Dosage: 1000 MG, 1X/DAY
  5. TARIQUIDAR [Interacting]
     Active Substance: TARIQUIDAR
     Dosage: 2 MG/KG
     Route: 042
  6. CLOBAZAM [Concomitant]
     Active Substance: CLOBAZAM
     Indication: Seizure cluster
     Dosage: 10 MG

REACTIONS (2)
  - Drug interaction [Recovered/Resolved]
  - Ataxia [Recovered/Resolved]
